FAERS Safety Report 8835962 (Version 1)
Quarter: 2012Q4

REPORT INFORMATION
  Report Type: 
  Country: US (occurrence: US)
  Receive Date: 20121011
  Receipt Date: 20121011
  Transmission Date: 20130627
  Serious: No
  Sender: FDA-Public Use
  Company Number: US-PFIZER INC-2012247831

PATIENT
  Sex: Male

DRUGS (3)
  1. VIAGRA [Suspect]
     Dosage: UNK
  2. BENICAR HCT [Interacting]
     Dosage: olmesartan medoxomil 40 mg/hydrochlorothiazide 25 mg, UNK
  3. SYNTHROID [Interacting]
     Dosage: 50 ug, UNK

REACTIONS (2)
  - Drug interaction [Unknown]
  - Drug ineffective [Unknown]
